FAERS Safety Report 8247598-3 (Version None)
Quarter: 2012Q1

REPORT INFORMATION
  Report Type: 
  Country: None (occurrence: None)
  Receive Date: 20120330
  Receipt Date: 20120326
  Transmission Date: 20120608
  Serious: Yes (Death, Hospitalization)
  Sender: FDA-Public Use
  Company Number: PHHO2011US05878

PATIENT
  Sex: Female
  Weight: 57.143 kg

DRUGS (2)
  1. METRONIDAZOLE [Suspect]
     Indication: ENDOMETRIAL CANCER METASTATIC
     Dosage: 500 MG, QD
     Route: 048
     Dates: start: 20110324, end: 20110328
  2. BKM120 [Suspect]
     Indication: ENDOMETRIAL CANCER METASTATIC
     Dosage: 100 MG, QD
     Route: 048
     Dates: start: 20110311, end: 20110319

REACTIONS (5)
  - VOMITING [None]
  - NEOPLASM MALIGNANT [None]
  - DIARRHOEA [None]
  - NEOPLASM PROGRESSION [None]
  - NAUSEA [None]
